FAERS Safety Report 19860042 (Version 7)
Quarter: 2021Q4

REPORT INFORMATION
  Report Type: Spontaneous
  Country: SK (occurrence: SK)
  Receive Date: 20210920
  Receipt Date: 20211125
  Transmission Date: 20220303
  Serious: Yes (Death, Other)
  Sender: FDA-Public Use
  Company Number: SK-SUN PHARMACEUTICAL INDUSTRIES LTD-2021RR-312536

PATIENT
  Age: 56 Year
  Sex: Male

DRUGS (3)
  1. VELCADE [Suspect]
     Active Substance: BORTEZOMIB
     Indication: Plasma cell myeloma
     Dosage: UNK
     Route: 065
  2. DEXAMETHASONE [Suspect]
     Active Substance: DEXAMETHASONE
     Indication: Plasma cell myeloma
     Dosage: UNK
     Route: 065
  3. CYCLOPHOSPHAMIDE [Suspect]
     Active Substance: CYCLOPHOSPHAMIDE
     Indication: Plasma cell myeloma
     Dosage: UNK
     Route: 065

REACTIONS (12)
  - Erysipelas [Fatal]
  - Multiple organ dysfunction syndrome [Fatal]
  - Myelosuppression [Fatal]
  - Azotaemia [Fatal]
  - Gastrointestinal haemorrhage [Fatal]
  - Haemorrhagic infarction [Fatal]
  - SARS-CoV-2 test positive [Fatal]
  - Colitis [Fatal]
  - Fungal oesophagitis [Fatal]
  - Septic shock [Fatal]
  - Pneumonia [Fatal]
  - Tinea cruris [Unknown]
